FAERS Safety Report 10156999 (Version 1)
Quarter: 2014Q2

REPORT INFORMATION
  Report Type: Spontaneous
  Country: US (occurrence: None)
  Receive Date: 20140506
  Receipt Date: 20140506
  Transmission Date: 20141212
  Serious: Yes (Disabling, Other)
  Sender: FDA-Public Use
  Company Number: None

PATIENT
  Sex: Male
  Weight: 74.84 kg

DRUGS (4)
  1. GOOD SENSE SUNSCREEN LOTION, BROAD SPECTRUM SPF 30 [Suspect]
     Indication: PROPHYLAXIS AGAINST SOLAR RADIATION
     Dosage: SPF 30?A TEA SPOON AT HALF A SPOON?ONCE?ON SKIN AND LIPS
     Route: 061
     Dates: start: 2013, end: 2014
  2. AONUSE NASAL SPRAY [Concomitant]
  3. ASPIRIN [Concomitant]
  4. MULTIPLE VITAMINS [Concomitant]

REACTIONS (5)
  - Amnesia [None]
  - Personality change [None]
  - Delusion [None]
  - Illusion [None]
  - Substance-induced psychotic disorder [None]
